FAERS Safety Report 7946634-9 (Version None)
Quarter: 2011Q4

REPORT INFORMATION
  Report Type: 
  Country: None (occurrence: None)
  Receive Date: 20111123
  Receipt Date: 20111111
  Transmission Date: 20120403
  Serious: Yes (Death, Hospitalization)
  Sender: FDA-Public Use
  Company Number: 2011-502

PATIENT
  Age: 99 Year
  Sex: Female

DRUGS (2)
  1. CLOZAPINE [Suspect]
     Dosage: 50 MG, ONCE, ORAL
     Route: 048
  2. MIDAZOLAM HCL [Concomitant]

REACTIONS (9)
  - WRONG DRUG ADMINISTERED [None]
  - LOSS OF CONSCIOUSNESS [None]
  - ACCIDENTAL EXPOSURE [None]
  - BLOOD PRESSURE INCREASED [None]
  - PULMONARY OEDEMA [None]
  - ASPIRATION [None]
  - FOREIGN BODY ASPIRATION [None]
  - HYPOPNOEA [None]
  - HEART RATE INCREASED [None]
